FAERS Safety Report 6673270-7 (Version None)
Quarter: 2010Q2

REPORT INFORMATION
  Report Type: 
  Country: None (occurrence: None)
  Receive Date: 20100408
  Receipt Date: 20100401
  Transmission Date: 20101027
  Serious: Yes (Hospitalization, Other)
  Sender: FDA-Public Use
  Company Number: CHPA2010IT06175

PATIENT
  Sex: Female

DRUGS (2)
  1. NEO-CIBALGINA (NCH) [Suspect]
     Indication: MIGRAINE
     Dosage: UNK, UNK
     Route: 048
     Dates: start: 20100320, end: 20100321
  2. ASPIRIN [Suspect]
     Indication: MYALGIA
     Dosage: 400MG +VIT C, UNK
     Route: 048
     Dates: start: 20100318, end: 20100319

REACTIONS (3)
  - EROSIVE DUODENITIS [None]
  - GASTRIC ULCER [None]
  - OESOPHAGOGASTRODUODENOSCOPY [None]
